FAERS Safety Report 6395580-3 (Version None)
Quarter: 2009Q4

REPORT INFORMATION
  Report Type: 
  Country: None (occurrence: None)
  Receive Date: 20091009
  Receipt Date: 20091002
  Transmission Date: 20100525
  Serious: Yes (Hospitalization)
  Sender: FDA-Public Use
  Company Number: MX-AMGEN-STX363261

PATIENT
  Sex: Male

DRUGS (2)
  1. PANITUMUMAB [Suspect]
     Indication: SQUAMOUS CELL CARCINOMA
     Route: 042
     Dates: start: 20090708, end: 20090825
  2. RADIATION THERAPY [Concomitant]
     Dates: start: 20090709, end: 20090825

REACTIONS (3)
  - DYSPHAGIA [None]
  - RASH [None]
  - STOMATITIS [None]
